FAERS Safety Report 4746251-8 (Version None)
Quarter: 2005Q3

REPORT INFORMATION
  Report Type: 
  Country: None (occurrence: None)
  Receive Date: 20050816
  Receipt Date: 20050805
  Transmission Date: 20060218
  Serious: Yes (Hospitalization, Other)
  Sender: FDA-Public Use
  Company Number: KII-2005-0017867

PATIENT
  Age: 48 Year
  Sex: Female

DRUGS (7)
  1. MORPHINE SULFATE [Suspect]
     Dosage: ORAL
     Route: 048
  2. HYDROCODONE BITARTRATE + ACETAMINOPHEN [Suspect]
     Indication: BACK PAIN
     Dosage: SEE TEXT, ORAL
     Route: 048
  3. METHADONE HCL [Suspect]
     Indication: BACK PAIN
     Dosage: QID, ORAL
     Route: 048
  4. ANTIPSYCHOTICS ( ) [Suspect]
     Dosage: HS, ORAL
     Route: 048
  5. SSRI ( ) [Suspect]
     Dosage: 75 MG, DAILY, ORAL
     Route: 048
  6. OTHER TYPE OF GASTROINTESTINAL PREPARATION ( ) [Suspect]
     Dosage: ORAL
     Route: 048
  7. COCAINE (COCAINE) [Suspect]

REACTIONS (11)
  - AGITATION [None]
  - ALANINE AMINOTRANSFERASE INCREASED [None]
  - APNOEA [None]
  - ASPARTATE AMINOTRANSFERASE INCREASED [None]
  - BLOOD ALKALINE PHOSPHATASE INCREASED [None]
  - BLOOD PRESSURE INCREASED [None]
  - BODY TEMPERATURE INCREASED [None]
  - COMA [None]
  - DRUG ABUSER [None]
  - DRUG SCREEN POSITIVE [None]
  - HEART RATE INCREASED [None]
